FAERS Safety Report 13965385 (Version 1)
Quarter: 2017Q3

REPORT INFORMATION
  Report Type: Spontaneous
  Country: CH (occurrence: CH)
  Receive Date: 20170913
  Receipt Date: 20170913
  Transmission Date: 20171128
  Serious: Yes (Life-Threatening, Hospitalization, Other)
  Sender: FDA-Public Use
  Company Number: CH-JNJFOC-20170911273

PATIENT
  Age: 4 Month
  Sex: Female
  Weight: 5 kg

DRUGS (2)
  1. LOPERAMIDE [Suspect]
     Active Substance: LOPERAMIDE
     Indication: GASTROENTERITIS
     Dosage: 2 MG / KG
     Route: 048
  2. LOPERAMIDE [Suspect]
     Active Substance: LOPERAMIDE
     Route: 048

REACTIONS (8)
  - Miosis [Recovered/Resolved]
  - Muscle rigidity [Recovered/Resolved]
  - Product use issue [Unknown]
  - Somnolence [Recovered/Resolved]
  - Coma [Recovered/Resolved]
  - Off label use [Unknown]
  - Bradypnoea [Recovered/Resolved]
  - Accidental overdose [Recovered/Resolved]
